FAERS Safety Report 19500000 (Version 1)
Quarter: 2021Q3

REPORT INFORMATION
  Report Type: Spontaneous
  Country: BR (occurrence: BR)
  Receive Date: 20210707
  Receipt Date: 20210707
  Transmission Date: 20211014
  Serious: Yes (Hospitalization, Other)
  Sender: FDA-Public Use
  Company Number: BR-NOVOPROD-826096

PATIENT
  Age: 52 Year
  Sex: Male
  Weight: 72.5 kg

DRUGS (1)
  1. INSULATARD HM [Suspect]
     Active Substance: INSULIN HUMAN
     Indication: TYPE 1 DIABETES MELLITUS
     Dosage: 30 UNITS MORNING (9 AM) AND 20 UNITS EVENING (21 PM)
     Route: 065

REACTIONS (2)
  - Oropharyngitis fungal [Unknown]
  - Diabetic ketoacidosis [Unknown]
